FAERS Safety Report 10661106 (Version 1)
Quarter: 2014Q4

REPORT INFORMATION
  Report Type: Spontaneous
  Country: US (occurrence: None)
  Receive Date: 20141216
  Receipt Date: 20141216
  Transmission Date: 20150529
  Serious: No
  Sender: FDA-Public Use
  Company Number: None

PATIENT
  Age: 95 Year
  Sex: Female
  Weight: 54.43 kg

DRUGS (8)
  1. LISINOPRIL-HCTZ [Concomitant]
     Active Substance: HYDROCHLOROTHIAZIDE\LISINOPRIL
  2. FOCUS ANTIBACTERIAL HAND SANITIZER [Concomitant]
     Active Substance: ALCOHOL
  3. BC [Concomitant]
     Active Substance: ASPIRIN\CAFFEINE
  4. ALEVE [Concomitant]
     Active Substance: NAPROXEN SODIUM
  5. LIDODERM [Concomitant]
     Active Substance: LIDOCAINE
  6. MULT BONE SUPPLEMENTS [Concomitant]
  7. LIDOCAINE PATCH [Suspect]
     Active Substance: LIDOCAINE
     Indication: MUSCULOSKELETAL PAIN
     Dosage: 5%, 1 PAD, DAILY, ON THE SKIN
  8. ACETAMINOPHEN AND CODEINE [Concomitant]
     Active Substance: ACETAMINOPHEN\CODEINE PHOSPHATE

REACTIONS (2)
  - Product packaging issue [None]
  - Product adhesion issue [None]
